FAERS Safety Report 8599334-9 (Version None)
Quarter: 2012Q3

REPORT INFORMATION
  Report Type: 
  Country: None (occurrence: None)
  Receive Date: 20120816
  Receipt Date: 20120120
  Transmission Date: 20120928
  Serious: Yes (Hospitalization)
  Sender: FDA-Public Use
  Company Number: US-AMGEN-USASP2012004721

PATIENT
  Age: 42 Year
  Sex: Female
  Weight: 59 kg

DRUGS (9)
  1. NEUPOGEN [Suspect]
     Indication: NEUTROPENIA
     Dosage: UNK
     Dates: start: 20111111, end: 20111112
  2. LEUKINE [Concomitant]
     Indication: NEUTROPENIA
     Dosage: UNK
     Dates: start: 20111104, end: 20111110
  3. IRINOTECAN HYDROCHLORIDE [Concomitant]
     Indication: COLORECTAL CANCER METASTATIC
     Dosage: 180 MG/M2, Q2WK
     Route: 042
     Dates: start: 20111028
  4. BENADRYL [Concomitant]
     Indication: PRURITUS
     Dosage: UNK
     Dates: start: 20111110, end: 20111115
  5. CIPROFLOXACIN [Concomitant]
     Indication: PROPHYLAXIS
     Dosage: UNK
     Dates: start: 20111110, end: 20111114
  6. BENADRYL [Concomitant]
     Indication: LIP SWELLING
  7. INVESTIGATIONAL DRUG [Suspect]
     Indication: COLORECTAL CANCER METASTATIC
     Dosage: UNK BLINDED, Q2WK
     Route: 042
     Dates: start: 20111028
  8. LEUCOVORIN CALCIUM [Concomitant]
     Indication: COLORECTAL CANCER METASTATIC
     Dosage: 400 MG/M2, Q2WK
     Route: 042
     Dates: start: 20111028
  9. FLUOROURACIL [Concomitant]
     Indication: COLORECTAL CANCER METASTATIC
     Dosage: 2400 MG/M2, Q2WK
     Route: 042
     Dates: start: 20111028

REACTIONS (1)
  - BACK PAIN [None]
